FAERS Safety Report 15023139 (Version 1)
Quarter: 2018Q2

REPORT INFORMATION
  Report Type: Report from Study
  Country: IN (occurrence: IN)
  Receive Date: 20180618
  Receipt Date: 20180618
  Transmission Date: 20180711
  Serious: Yes (Death, Other)
  Sender: FDA-Public Use
  Company Number: PHHY2018IN008505

PATIENT
  Age: 56 Year
  Sex: Female

DRUGS (1)
  1. GLIVEC [Suspect]
     Active Substance: IMATINIB MESYLATE
     Indication: GASTROINTESTINAL STROMAL TUMOUR
     Dosage: 400 MG, UNK
     Route: 065
     Dates: start: 201409, end: 201804

REACTIONS (3)
  - Malignant neoplasm progression [Unknown]
  - Gastrointestinal stromal tumour [Unknown]
  - Death [Fatal]

NARRATIVE: CASE EVENT DATE: 201801
